FAERS Safety Report 6941935-5 (Version None)
Quarter: 2010Q3

REPORT INFORMATION
  Report Type: 
  Country: None (occurrence: None)
  Receive Date: 20100823
  Receipt Date: 20100810
  Transmission Date: 20110219
  Serious: Yes (Other)
  Sender: FDA-Public Use
  Company Number: 2010P1000779

PATIENT
  Age: 69 Year
  Sex: Female
  Weight: 81.6475 kg

DRUGS (3)
  1. AMITRIPTYLIONE TABLET 10 MG (NO PREF. NAME) [Suspect]
     Indication: SLEEP DISORDER
     Dosage: 2 TABLETS; HS; PO
     Route: 048
     Dates: start: 20070701, end: 20100803
  2. BLOOD PRESSURE PILL [Concomitant]
  3. PREV MEDS [Concomitant]

REACTIONS (2)
  - LYMPHOMA [None]
  - WEIGHT DECREASED [None]
